FAERS Safety Report 5100522-4 (Version None)
Quarter: 2006Q3

REPORT INFORMATION
  Report Type: 
  Country: None (occurrence: None)
  Receive Date: 20060907
  Receipt Date: 20060907
  Transmission Date: 20061208
  Serious: Yes (Hospitalization)
  Sender: FDA-Public Use
  Company Number: None

PATIENT
  Sex: Female
  Weight: 63.8 kg

DRUGS (12)
  1. ERBITUX [Suspect]
     Indication: PANCREATIC CARCINOMA
     Dosage: 418 MG WEEKLY IV
     Route: 042
     Dates: start: 20060822, end: 20060822
  2. GEMZAR [Suspect]
     Indication: PANCREATIC CARCINOMA
     Dosage: 1670 MG EVERY 2 WEEKS IV
     Route: 042
     Dates: start: 20040808, end: 20060808
  3. OXALIPLATIN [Concomitant]
  4. SYNTHROID [Concomitant]
  5. NEXIUM [Concomitant]
  6. MAGNESIUM OXIDE [Concomitant]
  7. COMPAZINE [Concomitant]
  8. ACTIGAL [Concomitant]
  9. HYDROCODONE BITARTRATE + ACETAMINOPHEN [Concomitant]
  10. ZOFRAN [Concomitant]
  11. IMODIUM [Concomitant]
  12. LOMOTIL [Concomitant]

REACTIONS (7)
  - ABDOMINAL PAIN UPPER [None]
  - CHILLS [None]
  - CULTURE URINE POSITIVE [None]
  - ENTEROCOCCAL INFECTION [None]
  - ILL-DEFINED DISORDER [None]
  - NAUSEA [None]
  - PYREXIA [None]
